FAERS Safety Report 14765530 (Version 1)
Quarter: 2018Q2

REPORT INFORMATION
  Report Type: Spontaneous
  Country: FR (occurrence: FR)
  Receive Date: 20180416
  Receipt Date: 20180416
  Transmission Date: 20180711
  Serious: Yes (Other)
  Sender: FDA-Public Use
  Company Number: FR-BAYER-2018-067620

PATIENT
  Age: 63 Year
  Sex: Male

DRUGS (2)
  1. STIVARGA [Suspect]
     Active Substance: REGORAFENIB
     Indication: COLORECTAL CANCER METASTATIC
     Dosage: DAILY DOSE 160 MG
  2. STIVARGA [Suspect]
     Active Substance: REGORAFENIB
     Indication: COLORECTAL CANCER METASTATIC
     Dosage: 120 MG DAILY

REACTIONS (6)
  - Dysphonia [Not Recovered/Not Resolved]
  - Colorectal cancer metastatic [None]
  - Weight decreased [None]
  - Palmar-plantar erythrodysaesthesia syndrome [None]
  - General physical health deterioration [Recovering/Resolving]
  - Asthenia [None]
